FAERS Safety Report 25060715 (Version 2)
Quarter: 2025Q1

REPORT INFORMATION
  Report Type: Spontaneous
  Country: US (occurrence: US)
  Receive Date: 20250310
  Receipt Date: 20250314
  Transmission Date: 20250409
  Serious: Yes (Hospitalization, Other)
  Sender: PFIZER
  Company Number: US-PFIZER INC-202500051547

PATIENT
  Age: 69 Year
  Sex: Female

DRUGS (4)
  1. MEKTOVI [Suspect]
     Active Substance: BINIMETINIB
     Indication: Malignant melanoma
     Dosage: 45 MG, 2X/DAY (TAKE AS CLOSE TO 12 HRS APART)
     Route: 048
  2. MEKTOVI [Suspect]
     Active Substance: BINIMETINIB
     Indication: Lung transplant
  3. TALIMOGENE LAHERPAREPVEC [Concomitant]
     Active Substance: TALIMOGENE LAHERPAREPVEC
     Indication: Malignant melanoma
  4. TACROLIMUS [Concomitant]
     Active Substance: TACROLIMUS

REACTIONS (6)
  - COVID-19 [Unknown]
  - Second primary malignancy [Unknown]
  - Skin cancer [Unknown]
  - Fatigue [Unknown]
  - Off label use [Unknown]
  - Product dose omission in error [Unknown]
